FAERS Safety Report 4648525-8 (Version None)
Quarter: 2005Q2

REPORT INFORMATION
  Report Type: 
  Country: None (occurrence: None)
  Receive Date: 20050429
  Receipt Date: 20050419
  Transmission Date: 20051028
  Serious: Yes (Other)
  Sender: FDA-Public Use
  Company Number: US-BRISTOL-MYERS SQUIBB COMPANY-12939112

PATIENT
  Age: 55 Year
  Sex: Female

DRUGS (7)
  1. ESTRACE [Suspect]
     Indication: HOT FLUSH
     Route: 048
     Dates: start: 19951030, end: 19980408
  2. ESTRADIOL [Suspect]
     Indication: HOT FLUSH
     Route: 048
     Dates: start: 19980806, end: 19980101
  3. CYCRIN [Suspect]
     Indication: HOT FLUSH
     Dates: start: 19951022, end: 19971009
  4. PREMPRO [Suspect]
     Indication: HOT FLUSH
     Dates: start: 19990308, end: 20010109
  5. MEDROXYPROGESTERONE [Suspect]
     Indication: HOT FLUSH
     Dates: start: 19971108, end: 19981110
  6. PROVERA [Suspect]
     Indication: HOT FLUSH
     Dates: start: 19951218, end: 19980206
  7. TAMOXIFEN CITRATE [Suspect]

REACTIONS (5)
  - BREAST CANCER [None]
  - DEPRESSION [None]
  - DISTURBANCE IN ATTENTION [None]
  - EMOTIONAL DISORDER [None]
  - UTEROVAGINAL PROLAPSE [None]
